FAERS Safety Report 7189304-X (Version None)
Quarter: 2010Q4

REPORT INFORMATION
  Report Type: 
  Country: None (occurrence: None)
  Receive Date: 20101222
  Receipt Date: 20100811
  Transmission Date: 20110411
  Serious: No
  Sender: FDA-Public Use
  Company Number: US-AMGEN-TCS424551

PATIENT

DRUGS (5)
  1. ENBREL [Suspect]
     Indication: RHEUMATOID ARTHRITIS
     Dosage: 50 MG, QWK
     Route: 058
     Dates: start: 20080809, end: 20081108
  2. ANTIHYPERTENSIVE MEDICATION NOS [Concomitant]
     Dosage: UNK UNK, UNK
     Dates: start: 20090101
  3. GLIPIZIDE [Concomitant]
     Indication: DIABETES MELLITUS
     Dosage: 25 MG, QD
     Route: 048
     Dates: start: 20070101
  4. CARVEDILOL [Concomitant]
     Dosage: 25 MG, QD
     Route: 048
     Dates: start: 20100101
  5. ROSUVASTATIN CALCIUM [Concomitant]
     Dosage: UNK UNK, UNK
     Route: 048
     Dates: start: 20090101

REACTIONS (1)
  - HYPERTENSION [None]
